FAERS Safety Report 6046107-7 (Version None)
Quarter: 2009Q1

REPORT INFORMATION
  Report Type: 
  Country: None (occurrence: None)
  Receive Date: 20090122
  Receipt Date: 20090115
  Transmission Date: 20090719
  Serious: Yes (Hospitalization)
  Sender: FDA-Public Use
  Company Number: BR-BAYER-200911313LA

PATIENT
  Age: 63 Year
  Sex: Female

DRUGS (3)
  1. BETAFERON [Suspect]
     Indication: MULTIPLE SCLEROSIS
     Route: 058
     Dates: start: 20090115
  2. BETAFERON [Suspect]
     Route: 058
     Dates: start: 20040301, end: 20090107
  3. OMEPRAZOLE [Concomitant]
     Indication: GASTRIC DISORDER
     Dosage: TOTAL DAILY DOSE: 40 MG  UNIT DOSE: 40 MG
     Route: 048
     Dates: start: 20090108

REACTIONS (3)
  - HYPERTENSION [None]
  - INJECTION SITE PAIN [None]
  - PAIN IN EXTREMITY [None]
